FAERS Safety Report 21408507 (Version 1)
Quarter: 2022Q4

REPORT INFORMATION
  Report Type: Spontaneous
  Country: CN (occurrence: CN)
  Receive Date: 20221004
  Receipt Date: 20221004
  Transmission Date: 20230113
  Serious: Yes (Other)
  Sender: FDA-Public Use
  Company Number: None

PATIENT
  Age: 5 Year
  Sex: Female
  Weight: 13.9 kg

DRUGS (7)
  1. CYCLOPHOSPHAMIDE [Suspect]
     Active Substance: CYCLOPHOSPHAMIDE
     Indication: Acute lymphocytic leukaemia
     Dosage: 620 MG, INJECTION, QD, DILUTED WITH 0.9% SODIUM CHLORIDE 250 ML
     Route: 041
     Dates: start: 20220902, end: 20220902
  2. SODIUM CHLORIDE [Suspect]
     Active Substance: SODIUM CHLORIDE
     Indication: Medication dilution
     Dosage: 250 ML, QD, DILUTED IN CYCLOPHOSPHAMIDE 620 MG, STRENGTH 0.9%
     Route: 041
     Dates: start: 20220902, end: 20220902
  3. SODIUM CHLORIDE [Suspect]
     Active Substance: SODIUM CHLORIDE
     Dosage: 90 ML, QD, DILUTED IN VINCRISTINE SULFATE 0.9 MG
     Route: 042
     Dates: start: 20220902, end: 20220902
  4. DEXTROSE MONOHYDRATE [Suspect]
     Active Substance: DEXTROSE MONOHYDRATE
     Indication: Medication dilution
     Dosage: 50 ML, EVERY 2 DAY, DILUTED IN CYTARABINE HYDROCHLORIDE 30 MG
     Route: 041
     Dates: start: 20220902, end: 20220908
  5. VINCRISTINE SULFATE [Suspect]
     Active Substance: VINCRISTINE SULFATE
     Indication: Acute lymphocytic leukaemia
     Dosage: 0.9 MG, QD, DILUTED WITH SODIUM CHLORIDE 90 ML
     Route: 042
     Dates: start: 20220902, end: 20220902
  6. CYTARABINE HYDROCHLORIDE [Suspect]
     Active Substance: CYTARABINE HYDROCHLORIDE
     Indication: Acute lymphocytic leukaemia
     Dosage: 30 MG, QD, EVERY 2 DAY, DILUTED WITH GLUCOSE 50 ML
     Route: 041
     Dates: start: 20220902, end: 20220908
  7. PEGASPARGASE [Suspect]
     Active Substance: PEGASPARGASE
     Indication: Acute lymphocytic leukaemia
     Dosage: 1240 IU, QD
     Route: 030
     Dates: start: 20220902, end: 20220902

REACTIONS (2)
  - Myelosuppression [Recovering/Resolving]
  - Platelet count decreased [Recovering/Resolving]

NARRATIVE: CASE EVENT DATE: 20220913
